FAERS Safety Report 9201679 (Version 2)
Quarter: 2013Q2

REPORT INFORMATION
  Report Type: Report from Study
  Country: NL (occurrence: NL)
  Receive Date: 20130401
  Receipt Date: 20130430
  Transmission Date: 20140414
  Serious: Yes (Hospitalization)
  Sender: FDA-Public Use
  Company Number: PHHY2013NL031124

PATIENT
  Sex: Female

DRUGS (6)
  1. ACLASTA [Suspect]
     Indication: OSTEOPOROSIS
     Dosage: 5 MG ONCE PER 364 DAYS
     Route: 042
     Dates: start: 20120330, end: 201303
  2. AMLODIPINE [Concomitant]
  3. ENALAPRIL [Concomitant]
  4. PANTOZOL [Concomitant]
  5. PRAVASTATINE [Concomitant]
  6. ASCAL [Concomitant]

REACTIONS (4)
  - Chronic obstructive pulmonary disease [Recovered/Resolved]
  - Bronchitis [Recovered/Resolved]
  - Haemophilus infection [Recovered/Resolved]
  - Pneumonia [Recovered/Resolved]
